FAERS Safety Report 6526576-6 (Version None)
Quarter: 2010Q1

REPORT INFORMATION
  Report Type: 
  Country: None (occurrence: None)
  Receive Date: 20100105
  Receipt Date: 20091224
  Transmission Date: 20100710
  Serious: Yes (Hospitalization, Other)
  Sender: FDA-Public Use
  Company Number: PHEH2009US12020

PATIENT
  Sex: Female

DRUGS (16)
  1. RECLAST [Suspect]
     Dosage: UNK
     Dates: start: 20090713
  2. LACTOBACILLUS [Concomitant]
  3. PREDNISONE [Concomitant]
     Indication: POLYMYALGIA RHEUMATICA
     Dosage: 5 MG, BID
     Route: 048
  4. PREDNISONE [Concomitant]
     Dosage: 5 MG, QD
     Route: 048
  5. PREDNISONE [Concomitant]
     Dosage: 4 MG, QD
     Route: 048
  6. ACTONEL [Concomitant]
     Dosage: 35 MG, QW
     Route: 048
  7. ENABLEX [Concomitant]
     Dosage: 7.5 MG, QD
     Route: 048
  8. NEXIUM [Concomitant]
     Indication: GASTROOESOPHAGEAL REFLUX DISEASE
     Dosage: 40 MG, QD
  9. CELEXA [Concomitant]
     Dosage: 200 MG, QD
  10. ZINC [Concomitant]
     Dosage: 50 MG, QD
  11. CALCIUM WITH VITAMIN D [Concomitant]
     Dosage: 600 MG, BID
     Route: 048
  12. DICYCLOMINE [Concomitant]
     Indication: IRRITABLE BOWEL SYNDROME
     Dosage: 10 MG, Q6H PRN
     Route: 048
  13. TYLENOL (CAPLET) [Concomitant]
     Dosage: 650 MG, QD
     Route: 048
  14. MULTI-VITAMINS [Concomitant]
     Dosage: UNK
     Route: 048
  15. ALBUTEROL [Concomitant]
     Dosage: UNK
  16. ATIVAN [Concomitant]
     Dosage: UNK

REACTIONS (25)
  - ABDOMINAL DISCOMFORT [None]
  - ANXIETY [None]
  - ASTHENIA [None]
  - BACK PAIN [None]
  - BEDRIDDEN [None]
  - BLOOD SODIUM DECREASED [None]
  - CHILLS [None]
  - DEPRESSION [None]
  - DIARRHOEA [None]
  - DIZZINESS [None]
  - DYSPNOEA [None]
  - FALL [None]
  - FEELING ABNORMAL [None]
  - GAIT DISTURBANCE [None]
  - HAEMATOCRIT DECREASED [None]
  - HAEMOGLOBIN DECREASED [None]
  - HYPERTONIC BLADDER [None]
  - IRON BINDING CAPACITY TOTAL DECREASED [None]
  - LEUKOCYTOSIS [None]
  - MALAISE [None]
  - PYREXIA [None]
  - RED BLOOD CELL COUNT DECREASED [None]
  - RENAL FAILURE ACUTE [None]
  - RHABDOMYOLYSIS [None]
  - URINARY TRACT INFECTION [None]
